FAERS Safety Report 19230437 (Version 2)
Quarter: 2021Q2

REPORT INFORMATION
  Report Type: Spontaneous
  Country: US (occurrence: US)
  Receive Date: 20210507
  Receipt Date: 20210617
  Transmission Date: 20210717
  Serious: Yes (Other)
  Sender: FDA-Public Use
  Company Number: US-ASTRAZENECA-2021A399944

PATIENT
  Sex: Female
  Weight: 49.9 kg

DRUGS (3)
  1. FASENRA [Suspect]
     Active Substance: BENRALIZUMAB
     Indication: ASTHMA
     Dosage: 30 EVERY EIGHT WEEKS USED FOR ABOUT 1.5?2 YEARS
     Route: 058
  2. WATER PILL [Concomitant]
     Active Substance: UNSPECIFIED INGREDIENT
     Indication: PROPHYLAXIS
     Dosage: DAILY
     Route: 065
  3. DICYCLOMINE [Concomitant]
     Active Substance: DICYCLOMINE HYDROCHLORIDE
     Indication: COLON ADENOMA
     Dosage: DAILY
     Route: 065

REACTIONS (3)
  - Bone loss [Unknown]
  - Osteoporosis [Unknown]
  - Body height decreased [Unknown]
